FAERS Safety Report 11194386 (Version 3)
Quarter: 2016Q1

REPORT INFORMATION
  Report Type: Spontaneous
  Country: US (occurrence: US)
  Receive Date: 20150616
  Receipt Date: 20160111
  Transmission Date: 20160525
  Serious: No
  Sender: FDA-Public Use
  Company Number: US-GLAXOSMITHKLINE-US2015GSK080740

PATIENT
  Sex: Female
  Weight: 101.59 kg

DRUGS (2)
  1. ROPINIROLE HYDROCHLORIDE TABLET [Suspect]
     Active Substance: ROPINIROLE HYDROCHLORIDE
     Dosage: 15 MG, QD
     Route: 048
     Dates: start: 201506
  2. ROPINIROLE HYDROCHLORIDE TABLET [Suspect]
     Active Substance: ROPINIROLE HYDROCHLORIDE
     Indication: RESTLESS LEGS SYNDROME
     Dosage: 5-10 MG, QD

REACTIONS (4)
  - Restless legs syndrome [Unknown]
  - Exposure during pregnancy [Unknown]
  - Live birth [Unknown]
  - Malaise [Unknown]
